FAERS Safety Report 7405047-9 (Version None)
Quarter: 2011Q2

REPORT INFORMATION
  Report Type: 
  Country: None (occurrence: None)
  Receive Date: 20110411
  Receipt Date: 20110121
  Transmission Date: 20111010
  Serious: Yes (Hospitalization)
  Sender: FDA-Public Use
  Company Number: KR-BAYER-2011-014751

PATIENT
  Age: 59 Year
  Sex: Male
  Weight: 61 kg

DRUGS (6)
  1. ULTRACET [Concomitant]
     Indication: HEADACHE
     Dosage: 2 TABLETS, AS REQUIRED
     Dates: start: 20101108, end: 20101111
  2. MAGNESIUM OXIDE [Concomitant]
     Indication: HEPATIC NEOPLASM MALIGNANT
  3. SORAFENIB (RAF KINASE INHIBITOR) [Suspect]
     Indication: HEPATIC NEOPLASM MALIGNANT
     Dosage: 800 MG (400 MG,-)
     Route: 048
     Dates: start: 20101026
  4. LOPERAMIDE HCL [Concomitant]
     Indication: DIARRHOEA
     Dosage: 2 MG , 3 IN 1 DAY
     Dates: start: 20101108, end: 20101111
  5. MOSAPRIDE CITRATE [Concomitant]
     Indication: DYSPEPSIA
     Dosage: 10 MG , 3 IN 1 DAY
     Dates: start: 20101103, end: 20101111
  6. MAGNESIUM OXIDE [Concomitant]
     Indication: HEPATITIS B
     Dosage: 400 MG, 3 IN 1 D

REACTIONS (5)
  - TONGUE ULCERATION [None]
  - ELECTROLYTE IMBALANCE [None]
  - SKIN DISORDER [None]
  - DYSPNOEA [None]
  - HYPOXIA [None]
